FAERS Safety Report 9698234 (Version 1)
Quarter: 2013Q4

REPORT INFORMATION
  Report Type: Spontaneous
  Country: US (occurrence: US)
  Receive Date: 20131120
  Receipt Date: 20131120
  Transmission Date: 20140711
  Serious: No
  Sender: FDA-Public Use
  Company Number: US-ENDO PHARMACEUTICALS INC.-SOTA20120006

PATIENT
  Age: 79 Year
  Sex: Female

DRUGS (3)
  1. SOTALOL HYDROCHLORIDE TABLETS (AF) [Suspect]
     Indication: ATRIAL FIBRILLATION
     Route: 048
     Dates: start: 20120507
  2. SOTALOL HYDROCHLORIDE TABLETS (AF) [Suspect]
     Indication: ATRIAL FLUTTER
  3. METOPROLOL [Concomitant]

REACTIONS (3)
  - Melaena [Not Recovered/Not Resolved]
  - Dizziness [Not Recovered/Not Resolved]
  - Decreased appetite [Not Recovered/Not Resolved]
